FAERS Safety Report 20901663 (Version 1)
Quarter: 2022Q2

REPORT INFORMATION
  Report Type: Spontaneous
  Country: US (occurrence: None)
  Receive Date: 20220601
  Receipt Date: 20220601
  Transmission Date: 20220721
  Serious: Yes (Other)
  Sender: FDA-Public Use
  Company Number: None

PATIENT
  Age: 12 Year
  Sex: Female

DRUGS (10)
  1. TACROLIMUS [Suspect]
     Active Substance: TACROLIMUS
  2. ASPIRIN LOW TAB [Concomitant]
  3. ATORVASTATIN [Concomitant]
     Active Substance: ATORVASTATIN
  4. METHYLPHENID TAB [Concomitant]
  5. SIROLIMUS [Concomitant]
  6. SIROLIMUS SOL [Concomitant]
  7. TACROLIMUS [Concomitant]
  8. TACROLIMUS [Concomitant]
  9. TACROLIMUS [Concomitant]
     Active Substance: TACROLIMUS
  10. TACROLIMUS A [Concomitant]

REACTIONS (2)
  - Asthma [None]
  - Chest pain [None]

NARRATIVE: CASE EVENT DATE: 20220528
